FAERS Safety Report 21729902 (Version 1)
Quarter: 2022Q4

REPORT INFORMATION
  Report Type: Spontaneous
  Country: FR (occurrence: FR)
  Receive Date: 20221214
  Receipt Date: 20221214
  Transmission Date: 20230112
  Serious: Yes (Other)
  Sender: FDA-Public Use
  Company Number: FR-BAXTER-2022BAX026241

PATIENT
  Age: 58 Year
  Sex: Female

DRUGS (3)
  1. DEXAMETHASONE [Suspect]
     Active Substance: DEXAMETHASONE
     Indication: Product used for unknown indication
     Dosage: 40 MG/DOSE 4 DOSE(S)/WEEK (TREATMENT LINE NUMBER 2, DURATION: 0.1 MONTHS)
     Route: 065
     Dates: end: 20171107
  2. BORTEZOMIB [Suspect]
     Active Substance: BORTEZOMIB
     Indication: Product used for unknown indication
     Dosage: 2 MG/DOSE 2 DOSE(S)/WEEK (TREATMENT LINE NUMBER 2, DURATION: 0.1 MONTHS)
     Route: 065
     Dates: end: 20171107
  3. CYCLOPHOSPHAMIDE [Suspect]
     Active Substance: CYCLOPHOSPHAMIDE
     Indication: Product used for unknown indication
     Dosage: 300 MG/DOSE 1 DOSE(S)/WEEK (TREATMENT LINE NUMBER 2, DURATION: 0.1 MONTHS)
     Route: 065
     Dates: end: 20171107

REACTIONS (1)
  - Septic shock [Unknown]

NARRATIVE: CASE EVENT DATE: 20171107
